FAERS Safety Report 5629738-5 (Version None)
Quarter: 2008Q1

REPORT INFORMATION
  Report Type: 
  Country: None (occurrence: None)
  Receive Date: 20080218
  Receipt Date: 20080211
  Transmission Date: 20080703
  Serious: Yes (Hospitalization, Other)
  Sender: FDA-Public Use
  Company Number: CH-ASTRAZENECA-2008AC00454

PATIENT
  Age: 61 Year
  Sex: Male
  Weight: 100 kg

DRUGS (4)
  1. OMEPRAZOLE [Suspect]
  2. VORICONAZOLE [Interacting]
     Indication: BRONCHOPULMONARY ASPERGILLOSIS
     Dosage: (2 X 400 MG)
     Route: 042
  3. VORICONAZOLE [Interacting]
     Dosage: (2 X 300 MG)
     Route: 042
  4. VORICONAZOLE [Interacting]
     Dosage: (2 X 150 MG)
     Route: 042

REACTIONS (6)
  - ACCIDENTAL OVERDOSE [None]
  - CONFUSIONAL STATE [None]
  - DRUG INTERACTION [None]
  - EXTRAPYRAMIDAL DISORDER [None]
  - ILL-DEFINED DISORDER [None]
  - TOXIC ENCEPHALOPATHY [None]
